FAERS Safety Report 7485351-9 (Version None)
Quarter: 2011Q2

REPORT INFORMATION
  Report Type: 
  Country: None (occurrence: None)
  Receive Date: 20110517
  Receipt Date: 20100603
  Transmission Date: 20111010
  Serious: No
  Sender: FDA-Public Use
  Company Number: US-NOVEN-ALL1-2010-02261

PATIENT

DRUGS (7)
  1. DAYTRANA [Suspect]
     Dosage: 40 MG, 1X/DAY:QD
     Route: 062
     Dates: start: 20091001
  2. ABILIFY [Concomitant]
     Dosage: UNK MG, 1X/DAY:QD
     Route: 048
     Dates: start: 20100301, end: 20100301
  3. ZYPREXA [Concomitant]
     Dosage: 5 MG, 1X/DAY:QD
     Route: 048
     Dates: start: 20100323
  4. GEODON [Concomitant]
     Dosage: UNK MG, 1X/DAY:QD
     Route: 048
     Dates: end: 20100101
  5. GUANFACINE HYDROCHLORIDE [Concomitant]
     Dosage: 1 MG, 2X/DAY:BID (IN AM AND PM)
     Route: 048
     Dates: start: 20060101
  6. GUANFACINE HYDROCHLORIDE [Concomitant]
     Dosage: .5 MG, 1X/DAY:QD (AT NOON)
     Route: 048
     Dates: start: 20060101
  7. DAYTRANA [Suspect]
     Dosage: 30 MG, 1X/DAY:QD
     Route: 062
     Dates: start: 20090101, end: 20091001

REACTIONS (8)
  - DRUG INEFFECTIVE [None]
  - WRONG TECHNIQUE IN DRUG USAGE PROCESS [None]
  - NEGATIVISM [None]
  - PRODUCT QUALITY ISSUE [None]
  - DRUG ADMINISTERED AT INAPPROPRIATE SITE [None]
  - DISTURBANCE IN ATTENTION [None]
  - OVERDOSE [None]
  - PSYCHOMOTOR HYPERACTIVITY [None]
